FAERS Safety Report 6999848-9 (Version None)
Quarter: 2010Q3

REPORT INFORMATION
  Report Type: 
  Country: None (occurrence: None)
  Receive Date: 20100920
  Receipt Date: 20091014
  Transmission Date: 20110219
  Serious: No
  Sender: FDA-Public Use
  Company Number: US-ASTRAZENECA-2006UW26513

PATIENT
  Sex: Female

DRUGS (9)
  1. SEROQUEL [Suspect]
     Route: 048
     Dates: start: 20021231
  2. GLUCOTROL XL [Concomitant]
     Dates: start: 20021231
  3. NORVASC [Concomitant]
     Dosage: 5-10 MG QD
     Dates: start: 20021231
  4. WELLBUTRIN SR [Concomitant]
     Dates: start: 20021231
  5. AMBIEN [Concomitant]
     Dates: start: 20050118
  6. ZYRTEC [Concomitant]
     Dates: start: 20050118
  7. NEXIUM [Concomitant]
     Dates: start: 20050118
  8. LOTREL [Concomitant]
     Dates: start: 20050118
  9. METFORMIN [Concomitant]
     Dates: start: 20070709

REACTIONS (1)
  - DIABETES MELLITUS [None]
